FAERS Safety Report 8219396-8 (Version None)
Quarter: 2012Q1

REPORT INFORMATION
  Report Type: 
  Country: None (occurrence: None)
  Receive Date: 20120319
  Receipt Date: 20120314
  Transmission Date: 20120608
  Serious: Yes (Hospitalization, Other)
  Sender: FDA-Public Use
  Company Number: FR-PFIZER INC-2012066748

PATIENT
  Age: 30 Year
  Sex: Female

DRUGS (4)
  1. OXAZEPAM [Concomitant]
     Dosage: 50 MG, 2X/DAY
     Dates: start: 20000101
  2. EFFEXOR XR [Suspect]
     Dosage: 75 MG, 1X/DAY
     Dates: start: 20000101
  3. TERCIAN [Concomitant]
     Dosage: 25 MG, 3X/DAY
     Dates: start: 20000101
  4. ZOLPIDEM [Concomitant]

REACTIONS (2)
  - BACTERIAL PYELONEPHRITIS [None]
  - DRUG DEPENDENCE [None]
